FAERS Safety Report 5716129-1 (Version None)
Quarter: 2008Q2

REPORT INFORMATION
  Report Type: 
  Country: None (occurrence: None)
  Receive Date: 20080424
  Receipt Date: 20080424
  Transmission Date: 20081010
  Serious: Yes (Death)
  Sender: FDA-Public Use
  Company Number: US-ABBOTT-08R-163-0445225-00

PATIENT

DRUGS (2)
  1. SURVANTA [Suspect]
     Indication: NEONATAL RESPIRATORY DISTRESS SYNDROME
     Dosage: NOT REPORTED
     Route: 007
  2. CUROSURF [Suspect]
     Indication: RESPIRATORY FAILURE
     Dosage: NOT REPORTED
     Route: 007

REACTIONS (2)
  - NECROTISING COLITIS [None]
  - RESPIRATORY FAILURE [None]
